FAERS Safety Report 8438166 (Version 3)
Quarter: 2014Q2

REPORT INFORMATION
  Report Type: Spontaneous
  Country: US (occurrence: US)
  Receive Date: 20120302
  Receipt Date: 20140401
  Transmission Date: 20141212
  Serious: Yes (Other)
  Sender: FDA-Public Use
  Company Number: US-PFIZER INC-2012051191

PATIENT
  Age: 47 Year
  Sex: Female

DRUGS (13)
  1. LYRICA [Suspect]
     Indication: PHANTOM PAIN
     Dosage: 100 MG, 2X/DAY
     Route: 048
  2. LYRICA [Suspect]
     Dosage: 75 MG, 2X/DAY
     Route: 048
  3. PROGRAF [Concomitant]
     Dosage: UNK
  4. CELLCEPT [Concomitant]
     Dosage: UNK
  5. HUMALOG [Concomitant]
     Dosage: UNK
  6. LANTUS [Concomitant]
     Dosage: UNK
  7. TRAMADOL [Concomitant]
     Dosage: UNK
  8. ISOSORBIDE [Concomitant]
     Dosage: UNK
  9. TOPROL XL [Concomitant]
     Dosage: UNK
  10. SENSIPAR [Concomitant]
     Dosage: UNK
  11. NOVOLOG [Concomitant]
     Dosage: UNK
  12. PRO-AIR [Concomitant]
     Dosage: UNK
  13. OMEPRAZOLE [Concomitant]
     Dosage: UNK

REACTIONS (2)
  - Renal disorder [Unknown]
  - Type 1 diabetes mellitus [Unknown]
